FAERS Safety Report 16461772 (Version 2)
Quarter: 2021Q2

REPORT INFORMATION
  Report Type: Spontaneous
  Country: FR (occurrence: FR)
  Receive Date: 20190621
  Receipt Date: 20210629
  Transmission Date: 20210716
  Serious: Yes (Other)
  Sender: FDA-Public Use
  Company Number: FR-GLAXOSMITHKLINE-FR2019GSK111254

PATIENT
  Age: 66 Year
  Sex: Male

DRUGS (3)
  1. NICOPASS [Suspect]
     Active Substance: NICOTINE
     Indication: SMOKING CESSATION THERAPY
     Dosage: 2.5 MG, UNK (IF NEEDED)
     Route: 048
     Dates: start: 201802
  2. NICOPASS [Suspect]
     Active Substance: NICOTINE
     Dosage: 1.5 MG, UNK
     Route: 048
     Dates: start: 20180901
  3. NICOPATCH [Suspect]
     Active Substance: NICOTINE
     Indication: SMOKING CESSATION THERAPY
     Dosage: UNK
     Route: 062
     Dates: end: 20180628

REACTIONS (3)
  - Nicotine dependence [Unknown]
  - Intentional product use issue [Unknown]
  - Overdose [Unknown]
